FAERS Safety Report 15653765 (Version 1)
Quarter: 2018Q4

REPORT INFORMATION
  Report Type: Spontaneous
  Country: US (occurrence: US)
  Receive Date: 20181123
  Receipt Date: 20181123
  Transmission Date: 20190205
  Serious: Yes (Other)
  Sender: FDA-Public Use
  Company Number: None

PATIENT
  Age: 54 Year
  Sex: Female

DRUGS (1)
  1. KISQALI [Suspect]
     Active Substance: RIBOCICLIB
     Indication: BREAST CANCER
     Route: 048
     Dates: start: 20180905, end: 20181123

REACTIONS (7)
  - Hot flush [None]
  - Therapy cessation [None]
  - Back pain [None]
  - Dizziness [None]
  - Nausea [None]
  - Pain in extremity [None]
  - Vomiting [None]

NARRATIVE: CASE EVENT DATE: 20181123
